FAERS Safety Report 23241297 (Version 8)
Quarter: 2024Q4

REPORT INFORMATION
  Report Type: Spontaneous
  Country: BE (occurrence: BE)
  Receive Date: 20231129
  Receipt Date: 20241115
  Transmission Date: 20250115
  Serious: Yes (Death, Hospitalization, Other)
  Sender: RANBAXY
  Company Number: BE-SUN PHARMACEUTICAL INDUSTRIES LTD-2023RR-421082

PATIENT
  Age: 85 Year
  Sex: Male

DRUGS (22)
  1. TAMSULOSIN [Suspect]
     Active Substance: TAMSULOSIN
     Indication: Benign prostatic hyperplasia
     Dosage: 0.4 MILLIGRAM, DAILY
     Route: 048
     Dates: end: 20231006
  2. TAMSULOSIN [Suspect]
     Active Substance: TAMSULOSIN
     Dosage: 0.4 MILLIGRAM, DAILY
     Route: 048
  3. TAMSULOSIN [Suspect]
     Active Substance: TAMSULOSIN
     Dosage: UNK
     Route: 065
     Dates: start: 20240701
  4. AMIODARONE [Suspect]
     Active Substance: AMIODARONE
     Indication: Arrhythmia prophylaxis
     Dosage: 200 UNK
     Route: 065
     Dates: start: 20230309
  5. BISOPROLOL [Suspect]
     Active Substance: BISOPROLOL
     Indication: Hypertension
     Dosage: 2.5 MILLIGRAM, DAILY
     Route: 048
     Dates: start: 20230426
  6. SIMVASTATIN [Suspect]
     Active Substance: SIMVASTATIN
     Indication: Hypercholesterolaemia
     Dosage: 20 MILLIGRAM, DAILY
     Route: 048
  7. CORDARONE [Suspect]
     Active Substance: AMIODARONE HYDROCHLORIDE
     Indication: Atrial fibrillation
     Dosage: 200 MILLIGRAM, DAILY
     Route: 048
     Dates: start: 20230309
  8. EDOXABAN TOSYLATE [Suspect]
     Active Substance: EDOXABAN TOSYLATE
     Indication: Thrombosis prophylaxis
     Dosage: 30 MILLIGRAM, DAILY
     Route: 048
  9. ENTRESTO [Suspect]
     Active Substance: SACUBITRIL\VALSARTAN
     Indication: Cardiac failure
     Dosage: 1 MILLIGRAM
     Route: 065
  10. BUMETANIDE [Suspect]
     Active Substance: BUMETANIDE
     Indication: Cardiac failure
     Dosage: 1 MILLIGRAM, DAILY
     Route: 048
     Dates: start: 20230927, end: 20231004
  11. BUMETANIDE [Suspect]
     Active Substance: BUMETANIDE
     Dosage: 1 MILLIGRAM, QOD, EVERY 2 DAYS
     Dates: start: 20230927, end: 20231004
  12. PANTOPRAZOLE SODIUM [Suspect]
     Active Substance: PANTOPRAZOLE SODIUM
     Indication: Prophylaxis against gastrointestinal ulcer
     Dosage: 25 MILLIGRAM, DAILY
     Route: 048
  13. SPIRONOLACTONE [Suspect]
     Active Substance: SPIRONOLACTONE
     Indication: Cardiac failure
     Dosage: 25 MILLIGRAM, DAILY
     Route: 048
  14. SPIRONOLACTONE [Suspect]
     Active Substance: SPIRONOLACTONE
     Dosage: 25 MILLIGRAM
     Route: 048
     Dates: start: 20231006
  15. DAPAGLIFLOZIN [Suspect]
     Active Substance: DAPAGLIFLOZIN
     Indication: Cardiac failure
     Dosage: 10 MILLIGRAM, DAILY
     Route: 048
     Dates: start: 20230315, end: 20231004
  16. DAPAGLIFLOZIN [Suspect]
     Active Substance: DAPAGLIFLOZIN
     Dosage: 10 UNK
     Route: 048
     Dates: start: 20231006
  17. SACUBITRIL\VALSARTAN [Suspect]
     Active Substance: SACUBITRIL\VALSARTAN
     Indication: Cardiac failure
     Dosage: 0.5 DOSAGE FORM, BID
     Route: 048
  18. ZOLPIDEM [Concomitant]
     Active Substance: ZOLPIDEM TARTRATE
     Indication: Product used for unknown indication
     Dosage: 10 MILLIGRAM, DAILY
     Route: 065
  19. DARBEPOETIN ALFA [Concomitant]
     Active Substance: DARBEPOETIN ALFA
     Indication: Product used for unknown indication
     Dosage: 40 MICROGRAM, UNK
     Route: 058
  20. 1-ALPHA LEO [Concomitant]
     Indication: Vitamin D deficiency
     Dosage: 0.25 MICROGRAM, DAILY
     Route: 048
  21. SODIUM BICARBONATE [Concomitant]
     Active Substance: SODIUM BICARBONATE
     Indication: Prophylaxis against dehydration
     Dosage: 3 MILLIGRAM, DAILY
     Route: 048
  22. FENOTEROL [Concomitant]
     Active Substance: FENOTEROL
     Indication: Product used for unknown indication
     Dosage: 8 DOSAGE FORM, DAILY

REACTIONS (12)
  - Cardiac failure [Fatal]
  - Pneumonia [Fatal]
  - Acute kidney injury [Fatal]
  - Atrial fibrillation [Fatal]
  - Atrioventricular block [Fatal]
  - Dehydration [Fatal]
  - Hypotension [Fatal]
  - Loss of consciousness [Fatal]
  - Renal failure [Fatal]
  - Dizziness [Fatal]
  - Presyncope [Fatal]
  - Wrong technique in product usage process [Fatal]

NARRATIVE: CASE EVENT DATE: 20230927
